FAERS Safety Report 6879253-6 (Version None)
Quarter: 2010Q3

REPORT INFORMATION
  Report Type: 
  Country: None (occurrence: None)
  Receive Date: 20100728
  Receipt Date: 20091102
  Transmission Date: 20110219
  Serious: No
  Sender: FDA-Public Use
  Company Number: US-ABBOTT-09P-163-0606598-00

PATIENT
  Sex: Male
  Weight: 70.37 kg

DRUGS (2)
  1. SYNTHROID [Suspect]
     Indication: HYPOTHYROIDISM
     Dates: end: 20090301
  2. SYNTHROID [Suspect]
     Dates: start: 20090301

REACTIONS (2)
  - HYPOTHYROIDISM [None]
  - LIBIDO DECREASED [None]
